FAERS Safety Report 10904963 (Version 1)
Quarter: 2015Q1

REPORT INFORMATION
  Report Type: Spontaneous
  Country: US (occurrence: None)
  Receive Date: 20150304
  Receipt Date: 20150304
  Transmission Date: 20150721
  Serious: Yes (Other)
  Sender: FDA-Public Use
  Company Number: None

PATIENT
  Age: 19 Year
  Sex: Female
  Weight: 37.2 kg

DRUGS (4)
  1. NOVOCAIN [Suspect]
     Active Substance: PROCAINE HYDROCHLORIDE
     Indication: THERAPEUTIC PROCEDURE
     Dates: start: 20150302, end: 20150302
  2. BCP [Concomitant]
  3. IBUPROFEN. [Concomitant]
     Active Substance: IBUPROFEN
  4. NOVOCAIN [Suspect]
     Active Substance: PROCAINE HYDROCHLORIDE
     Dates: start: 20150302, end: 20150302

REACTIONS (3)
  - Infection [None]
  - Swelling face [None]
  - Ulcer [None]

NARRATIVE: CASE EVENT DATE: 20150302
